FAERS Safety Report 25978381 (Version 2)
Quarter: 2025Q4

REPORT INFORMATION
  Report Type: Report from Study
  Country: EU (occurrence: EU)
  Receive Date: 20251030
  Receipt Date: 20251112
  Transmission Date: 20260117
  Serious: Yes (Hospitalization, Other)
  Sender: AUROBINDO
  Company Number: EU-ROCHE-3090593

PATIENT
  Age: 64 Year
  Sex: Female

DRUGS (7)
  1. CEFTRIAXONE SODIUM [Suspect]
     Active Substance: CEFTRIAXONE SODIUM
     Indication: Product used for unknown indication
     Dosage: 1G/3.5ML
     Route: 051
     Dates: start: 2021
  2. LEVOFLOXACIN [Suspect]
     Active Substance: LEVOFLOXACIN
     Indication: Antibiotic therapy
     Dosage: 500 MILLIGRAM
     Route: 065
     Dates: start: 2021
  3. LEVOFLOXACIN [Suspect]
     Active Substance: LEVOFLOXACIN
     Indication: Escherichia infection
  4. KETOROLAC [Suspect]
     Active Substance: KETOROLAC TROMETHAMINE
     Indication: Product used for unknown indication
     Dosage: 30 MILLIGRAM PER MILLILETER
     Route: 051
     Dates: start: 2021
  5. CEFDITOREN [Suspect]
     Active Substance: CEFDITOREN
     Indication: Antibiotic therapy
     Dosage: 400 MILLIGRAM
     Route: 065
     Dates: start: 2021
  6. RAMIPRIL [Concomitant]
     Active Substance: RAMIPRIL
     Indication: Product used for unknown indication
     Dosage: 10 MILLIGRAM
     Route: 065
  7. AMLODIPINE [Concomitant]
     Active Substance: AMLODIPINE BESYLATE
     Indication: Product used for unknown indication
     Dosage: 5 MILLIGRAM
     Route: 065

REACTIONS (9)
  - Escherichia infection [Unknown]
  - Pyelonephritis [Unknown]
  - Hydronephrosis [Unknown]
  - Hyperpyrexia [Unknown]
  - Cystocele [Unknown]
  - Back pain [Unknown]
  - Vulvovaginal discomfort [Unknown]
  - Drug ineffective [Unknown]
  - Polymerase chain reaction positive [Unknown]

NARRATIVE: CASE EVENT DATE: 20210926
